FAERS Safety Report 6650091-2 (Version None)
Quarter: 2010Q1

REPORT INFORMATION
  Report Type: 
  Country: None (occurrence: None)
  Receive Date: 20100325
  Receipt Date: 20100319
  Transmission Date: 20100710
  Serious: Yes (Death)
  Sender: FDA-Public Use
  Company Number: CA-CELGENEUS-028-50794-10022012

PATIENT
  Age: 55 Year
  Sex: Male

DRUGS (1)
  1. VIDAZA [Suspect]
     Route: 058
     Dates: start: 20100125, end: 20100130

REACTIONS (2)
  - ACUTE ABDOMEN [None]
  - MULTI-ORGAN FAILURE [None]
